FAERS Safety Report 23486743 (Version 1)
Quarter: 2024Q1

REPORT INFORMATION
  Report Type: Spontaneous
  Country: US (occurrence: None)
  Receive Date: 20240205
  Receipt Date: 20240205
  Transmission Date: 20240410
  Serious: Yes (Other)
  Sender: FDA-Public Use
  Company Number: None

PATIENT
  Age: 50 Year
  Sex: Female
  Weight: 77.85 kg

DRUGS (6)
  1. GEMTESA [Suspect]
     Active Substance: VIBEGRON
     Indication: Hypertonic bladder
     Dosage: 1 TABLET ORAL?
     Route: 048
     Dates: start: 20231223, end: 20231223
  2. Ester C [Concomitant]
  3. VITAMINS [Concomitant]
     Active Substance: VITAMINS
  4. 5-Htp [Concomitant]
  5. BIOTIN [Concomitant]
     Active Substance: BIOTIN
  6. LORATADINE [Concomitant]
     Active Substance: LORATADINE

REACTIONS (3)
  - Paraesthesia [None]
  - Hot flush [None]
  - Erythema [None]

NARRATIVE: CASE EVENT DATE: 20231223
